FAERS Safety Report 15606322 (Version 1)
Quarter: 2018Q4

REPORT INFORMATION
  Report Type: Spontaneous
  Country: US (occurrence: US)
  Receive Date: 20181112
  Receipt Date: 20181112
  Transmission Date: 20190205
  Serious: No
  Sender: FDA-Public Use
  Company Number: US-BAYER-2018-207992

PATIENT
  Sex: Female

DRUGS (2)
  1. MIRALAX [Suspect]
     Active Substance: POLYETHYLENE GLYCOL 3350
     Indication: SURGERY
     Dosage: UNK
     Route: 065
  2. MIRALAX [Suspect]
     Active Substance: POLYETHYLENE GLYCOL 3350
     Indication: SURGERY
     Dosage: UNK
     Route: 065

REACTIONS (6)
  - Feeling hot [Unknown]
  - Product quality issue [Unknown]
  - Drug ineffective for unapproved indication [Unknown]
  - Circumstance or information capable of leading to medication error [Unknown]
  - Burning sensation [Unknown]
  - Poor quality product administered [Unknown]
